FAERS Safety Report 19942282 (Version 1)
Quarter: 2021Q4

REPORT INFORMATION
  Report Type: Report from Study
  Country: US (occurrence: US)
  Receive Date: 20211011
  Receipt Date: 20211011
  Transmission Date: 20220303
  Serious: Yes (Other)
  Sender: FDA-Public Use
  Company Number: 2021A617358

PATIENT
  Age: 68 Year
  Sex: Female
  Weight: 72.6 kg

DRUGS (7)
  1. LYNPARZA [Suspect]
     Active Substance: OLAPARIB
     Indication: Neoplasm malignant
     Route: 048
     Dates: start: 201801, end: 202107
  2. TAXOL [Concomitant]
     Active Substance: PACLITAXEL
     Route: 065
     Dates: start: 201511, end: 201607
  3. CARBOPLATIN [Concomitant]
     Active Substance: CARBOPLATIN
  4. GEMZAR [Concomitant]
     Active Substance: GEMCITABINE HYDROCHLORIDE
  5. AVASTIN [Concomitant]
     Active Substance: BEVACIZUMAB
  6. FLUTICASONE PROPIONATE [Concomitant]
     Active Substance: FLUTICASONE PROPIONATE
     Dosage: 2 SPRAY EACH DAILY
     Route: 045
  7. VITAMINS [Concomitant]
     Active Substance: VITAMINS
     Route: 048

REACTIONS (3)
  - Ovarian cancer recurrent [Unknown]
  - Malignant neoplasm progression [Unknown]
  - Drug ineffective [Unknown]
